FAERS Safety Report 5534400-3 (Version None)
Quarter: 2007Q4

REPORT INFORMATION
  Report Type: 
  Country: None (occurrence: None)
  Receive Date: 20071205
  Receipt Date: 20071119
  Transmission Date: 20080405
  Serious: Yes (Death, Other)
  Sender: FDA-Public Use
  Company Number: US-BAYER-200714991NA

PATIENT
  Age: 75 Year
  Sex: Male

DRUGS (1)
  1. CAMPATH [Suspect]
     Indication: CHRONIC LYMPHOCYTIC LEUKAEMIA
     Route: 058
     Dates: end: 20070301

REACTIONS (3)
  - CYTOMEGALOVIRUS INFECTION [None]
  - GRAFT VERSUS HOST DISEASE [None]
  - SEPSIS [None]
